FAERS Safety Report 17143625 (Version 6)
Quarter: 2020Q3

REPORT INFORMATION
  Report Type: Spontaneous
  Country: US (occurrence: US)
  Receive Date: 20191212
  Receipt Date: 20200803
  Transmission Date: 20201102
  Serious: No
  Sender: FDA-Public Use
  Company Number: US-PFIZER INC-2019535757

PATIENT
  Age: 97 Year
  Sex: Female
  Weight: 51.7 kg

DRUGS (5)
  1. XALATAN [Suspect]
     Active Substance: LATANOPROST
     Indication: GLAUCOMA
     Dosage: DAILY, (MORE THAN 1 DROP IN EACH EYE AT BEDTIME NIGHTLY)
     Route: 047
  2. SYSTANE (HYPROMELLOSE 2910 (4000 MPA.S)) [Concomitant]
     Active Substance: HYPROMELLOSE 2910 (4000 MPA.S)
     Indication: DRY EYE
     Dosage: UNK
  3. XALATAN [Suspect]
     Active Substance: LATANOPROST
     Dosage: 2 DROP, 1X/DAY [1 DROP IN EACH EYE AT BEDTIME NIGHTLY]
     Route: 047
  4. XALATAN [Suspect]
     Active Substance: LATANOPROST
     Dosage: 2 DROP, 1X/DAY [1 DROP IN EACH EYE AT BEDTIME NIGHTLY]
     Route: 047
  5. LATANOPROST. [Suspect]
     Active Substance: LATANOPROST
     Indication: GLAUCOMA
     Dosage: 2 GTT, 1X/DAY [1 DROP EACH EYE NIGHTLY]
     Route: 047

REACTIONS (2)
  - Tremor [Recovered/Resolved]
  - Intentional product use issue [Unknown]
